FAERS Safety Report 8384445-3 (Version None)
Quarter: 2012Q2

REPORT INFORMATION
  Report Type: 
  Country: None (occurrence: None)
  Receive Date: 20120524
  Receipt Date: 20120517
  Transmission Date: 20120825
  Serious: Yes (Other)
  Sender: FDA-Public Use
  Company Number: US-GLAXOSMITHKLINE-A0978769A

PATIENT
  Sex: Male

DRUGS (6)
  1. ARICEPT [Concomitant]
  2. BUPROPION HCL [Suspect]
     Indication: DEPRESSION
     Dosage: 325MG PER DAY
     Route: 065
  3. OMEPRAZOLE [Concomitant]
  4. MORPHINE [Concomitant]
  5. UNSPECIFIED MEDICATIONS [Suspect]
     Indication: DEPRESSION
     Route: 065
  6. LYRICA [Suspect]
     Indication: NEUROPATHY PERIPHERAL
     Dosage: 25MG PER DAY
     Route: 048
     Dates: start: 20120425, end: 20120425

REACTIONS (6)
  - DECREASED INTEREST [None]
  - DISSOCIATION [None]
  - DEPRESSION [None]
  - FEELING ABNORMAL [None]
  - MENTAL DISORDER [None]
  - SUICIDAL IDEATION [None]
